FAERS Safety Report 8304139-X (Version None)
Quarter: 2012Q2

REPORT INFORMATION
  Report Type: 
  Country: None (occurrence: None)
  Receive Date: 20120411
  Receipt Date: 20120330
  Transmission Date: 20120825
  Serious: Yes (Other)
  Sender: FDA-Public Use
  Company Number: 2012031088

PATIENT
  Age: 23 Year
  Sex: Male
  Weight: 48.5349 kg

DRUGS (12)
  1. BANZEL (RUFINAMIDE) [Concomitant]
  2. HIZENTRA [Suspect]
     Indication: IMMUNODEFICIENCY COMMON VARIABLE
     Dosage: SEE IMAGE
     Route: 058
     Dates: start: 20111121
  3. HIZENTRA [Suspect]
     Indication: IMMUNODEFICIENCY COMMON VARIABLE
     Dosage: SEE IMAGE
     Route: 058
     Dates: start: 20111212, end: 20111212
  4. OXYGEN (OXYGEN) [Concomitant]
  5. ZITHROMAX [Concomitant]
  6. ACETAMINOPHEN [Concomitant]
  7. IBUPROFEN [Concomitant]
  8. HIZENTRA [Suspect]
  9. DUONEB [Concomitant]
  10. NEURONTIN [Concomitant]
  11. TOBRAMYCIN [Concomitant]
  12. CARDIZEM [Concomitant]

REACTIONS (3)
  - SINUSITIS [None]
  - CONVULSION [None]
  - CONDITION AGGRAVATED [None]
